FAERS Safety Report 5682415-7 (Version None)
Quarter: 2008Q1

REPORT INFORMATION
  Report Type: 
  Country: None (occurrence: None)
  Receive Date: 20080327
  Receipt Date: 20080319
  Transmission Date: 20080703
  Serious: Yes (Death, Other)
  Sender: FDA-Public Use
  Company Number: JP-JNJFOC-20080105941

PATIENT
  Sex: Male
  Weight: 47 kg

DRUGS (11)
  1. REMICADE [Suspect]
     Indication: RHEUMATOID ARTHRITIS
     Dosage: DOSE GIVEN ON 16-JAN-2008
     Route: 042
  2. RHEUMATREX [Concomitant]
     Indication: RHEUMATOID ARTHRITIS
     Dosage: ONE CAPSULE IN THE MORNING AND EVENING ON THURSDAY
     Route: 048
  3. AZULFIDINE EN-TABS [Concomitant]
     Indication: RHEUMATOID ARTHRITIS
     Route: 048
  4. PREDNISOLONE [Concomitant]
     Indication: RHEUMATOID ARTHRITIS
     Route: 048
  5. GLORIAMIN [Concomitant]
     Route: 048
  6. FUROSEMIDE [Concomitant]
     Indication: CARDIAC FAILURE
     Route: 048
  7. TAKEPRON [Concomitant]
     Route: 048
  8. LANIRAPID [Concomitant]
     Indication: ATRIAL FIBRILLATION
  9. WARFARIN SODIUM [Concomitant]
     Indication: ATRIAL FIBRILLATION
     Route: 048
  10. PIROLACTON [Concomitant]
     Indication: CARDIAC FAILURE
     Route: 048
  11. ZYRTEC [Concomitant]
     Route: 048

REACTIONS (3)
  - DEATH [None]
  - PLATELET COUNT DECREASED [None]
  - PNEUMONIA ASPIRATION [None]
